FAERS Safety Report 17456914 (Version 1)
Quarter: 2020Q1

REPORT INFORMATION
  Report Type: Report from Study
  Country: CA (occurrence: CA)
  Receive Date: 20200225
  Receipt Date: 20200225
  Transmission Date: 20200409
  Serious: Yes (Death, Other)
  Sender: FDA-Public Use
  Company Number: CA-GLAXOSMITHKLINE-CA2020GSK024767

PATIENT
  Age: 72 Year
  Sex: Male

DRUGS (4)
  1. ZANAMIVIR [Suspect]
     Active Substance: ZANAMIVIR
     Indication: H1N1 INFLUENZA
     Dosage: UNK
     Route: 042
     Dates: end: 20180320
  2. OSELTAMIVIR [Suspect]
     Active Substance: OSELTAMIVIR
     Dosage: UNK
     Dates: end: 20180301
  3. ZANAMIVIR [Suspect]
     Active Substance: ZANAMIVIR
     Dosage: UNK
     Dates: end: 201804
  4. OSELTAMIVIR [Suspect]
     Active Substance: OSELTAMIVIR
     Indication: H1N1 INFLUENZA
     Dosage: 150 MG, BID
     Dates: end: 20180214

REACTIONS (11)
  - Pneumonia [Fatal]
  - Lung abscess [Fatal]
  - Dyspnoea [Unknown]
  - Bronchiectasis [Unknown]
  - Respiratory disorder [Fatal]
  - Pulmonary fibrosis [Fatal]
  - Viral mutation identified [Unknown]
  - Multiple-drug resistance [Unknown]
  - Pathogen resistance [Unknown]
  - Lung infiltration [Unknown]
  - Organising pneumonia [Fatal]

NARRATIVE: CASE EVENT DATE: 20180320
